FAERS Safety Report 4951556-1 (Version None)
Quarter: 2006Q1

REPORT INFORMATION
  Report Type: 
  Country: None (occurrence: None)
  Receive Date: 20060323
  Receipt Date: 20060314
  Transmission Date: 20060701
  Serious: Yes (Death)
  Sender: FDA-Public Use
  Company Number: GB-BRISTOL-MYERS SQUIBB COMPANY-13314919

PATIENT
  Age: 49 Year
  Sex: Female

DRUGS (2)
  1. PLATINEX [Suspect]
     Indication: CERVIX CARCINOMA
  2. RADIOTHERAPY [Concomitant]
     Indication: CERVIX CARCINOMA

REACTIONS (1)
  - CONGESTIVE CARDIOMYOPATHY [None]
